FAERS Safety Report 23329073 (Version 1)
Quarter: 2023Q4

REPORT INFORMATION
  Report Type: Spontaneous
  Country: DE (occurrence: DE)
  Receive Date: 20231222
  Receipt Date: 20231222
  Transmission Date: 20240110
  Serious: Yes (Death, Other)
  Sender: FDA-Public Use
  Company Number: DE-BAXTER-2023BAX038553

PATIENT
  Age: 60 Year
  Sex: Male

DRUGS (1)
  1. OLIMEL [Suspect]
     Active Substance: AMINO ACIDS\DEXTROSE\SOYBEAN OIL
     Indication: Malnutrition
     Dosage: AT AN UNSPECIFIED DOSE AND FREQUENCY, 80 ML/H VIA INTRADIALYTIC NUTRITION
     Route: 050
     Dates: start: 20231021

REACTIONS (3)
  - Cardiac failure [Fatal]
  - Cardiogenic shock [Fatal]
  - Nausea [Unknown]

NARRATIVE: CASE EVENT DATE: 20231024
